FAERS Safety Report 25236111 (Version 1)
Quarter: 2025Q2

REPORT INFORMATION
  Report Type: Spontaneous
  Country: DE (occurrence: DE)
  Receive Date: 20250424
  Receipt Date: 20250424
  Transmission Date: 20250717
  Serious: Yes (Other)
  Sender: ELI LILLY AND COMPANY
  Company Number: None

PATIENT
  Age: 78 Year
  Sex: Female

DRUGS (3)
  1. LASMIDITAN [Suspect]
     Active Substance: LASMIDITAN
     Indication: Migraine
     Route: 048
     Dates: start: 20241224, end: 20241224
  2. DOXEPIN [Concomitant]
     Active Substance: DOXEPIN
     Indication: Initial insomnia
     Dosage: 0.5 DOSAGE FORM, DAILY (0-0-0.5)
     Route: 048
  3. CANDESARTAN [Concomitant]
     Active Substance: CANDESARTAN
     Indication: Hypertension
     Dosage: 1 DOSAGE FORM, BID (1-0-1)
     Route: 048

REACTIONS (2)
  - Hypertensive crisis [Recovered/Resolved]
  - Malaise [Recovered/Resolved]

NARRATIVE: CASE EVENT DATE: 20241224
